FAERS Safety Report 19332043 (Version 1)
Quarter: 2021Q2

REPORT INFORMATION
  Report Type: Spontaneous
  Country: US (occurrence: US)
  Receive Date: 20210529
  Receipt Date: 20210529
  Transmission Date: 20210717
  Serious: Yes (Hospitalization, Other)
  Sender: FDA-Public Use
  Company Number: US-MACLEODS PHARMACEUTICALS US LTD-MAC2021031299

PATIENT

DRUGS (4)
  1. LIDOCAINE. [Suspect]
     Active Substance: LIDOCAINE
     Indication: LOCAL ANAESTHESIA
     Dosage: UNK, 2 ML OF 0.5% LIDOCAINE SOLUTION CONTAINING 80 MG METHYLPREDNISOLONE AND 12 MG BETAMETHASONE INJ
     Route: 008
  2. BETAMETHASONE. [Suspect]
     Active Substance: BETAMETHASONE
     Indication: PRODUCT USED FOR UNKNOWN INDICATION
     Dosage: 12 MILLIGRAM, 2 ML OF 0.5% LIDOCAINE SOLUTION CONTAINING 80 MG METHYLPREDNISOLONE AND 12 MG BETAMETH
     Route: 008
  3. LIDOCAINE. [Suspect]
     Active Substance: LIDOCAINE
     Dosage: UNK
     Route: 058
  4. METHYLPREDNISOLONE. [Suspect]
     Active Substance: METHYLPREDNISOLONE
     Indication: PRODUCT USED FOR UNKNOWN INDICATION
     Dosage: 80 MILLIGRAM, 2 ML OF 0.5% LIDOCAINE SOLUTION CONTAINING 80 MG METHYLPREDNISOLONE AND 12 MG BETAMETH
     Route: 008

REACTIONS (3)
  - Pneumocephalus [Recovered/Resolved]
  - Meningitis chemical [Recovered/Resolved]
  - Post procedural complication [Unknown]
